FAERS Safety Report 5287638-7 (Version None)
Quarter: 2007Q1

REPORT INFORMATION
  Report Type: 
  Country: None (occurrence: None)
  Receive Date: 20070105
  Receipt Date: 20060606
  Transmission Date: 20070707
  Serious: No
  Sender: FDA-Public Use
  Company Number: 20060126

PATIENT
  Age: 56 Year
  Sex: Female

DRUGS (1)
  1. VENOFER [Suspect]
     Indication: IRON DEFICIENCY ANAEMIA
     Dosage: 200 MG INTRAVENOUS BOLUS
     Route: 040
     Dates: start: 20060602

REACTIONS (3)
  - MALAISE [None]
  - PYREXIA [None]
  - SWELLING FACE [None]
